FAERS Safety Report 4603313-3 (Version None)
Quarter: 2005Q1

REPORT INFORMATION
  Report Type: 
  Country: None (occurrence: None)
  Receive Date: 20050307
  Receipt Date: 20050221
  Transmission Date: 20050727
  Serious: Yes (Hospitalization)
  Sender: FDA-Public Use
  Company Number: 2005033893

PATIENT
  Age: 71 Year
  Sex: Female

DRUGS (6)
  1. ZITHROMAX [Suspect]
     Indication: NASOPHARYNGITIS
     Dosage: 500 MG (500 MG, 1 IN 1 D), ORAL
     Route: 048
     Dates: start: 20040101
  2. CLINDAMYCIN (CLINDAMYCIN) [Suspect]
     Indication: CELLULITIS
     Dosage: 1 D
  3. NIFEDIPINE [Concomitant]
  4. DIOVAN HCT [Concomitant]
  5. ATENOLOL [Concomitant]
  6. METFORMIN HCL [Concomitant]

REACTIONS (2)
  - CELLULITIS [None]
  - DRUG HYPERSENSITIVITY [None]
